FAERS Safety Report 14254709 (Version 1)
Quarter: 2017Q4

REPORT INFORMATION
  Report Type: Spontaneous
  Country: DE (occurrence: DE)
  Receive Date: 20171206
  Receipt Date: 20171206
  Transmission Date: 20180321
  Serious: Yes (Hospitalization)
  Sender: FDA-Public Use
  Company Number: DE-ACTELION-A-CH2017-163287

PATIENT
  Sex: Female

DRUGS (1)
  1. UPTRAVI [Suspect]
     Active Substance: SELEXIPAG
     Indication: PRODUCT USED FOR UNKNOWN INDICATION
     Dosage: UNK
     Route: 048
     Dates: start: 201708

REACTIONS (3)
  - Haemoglobin decreased [Unknown]
  - Intestinal haemorrhage [Unknown]
  - General physical health deterioration [Unknown]

NARRATIVE: CASE EVENT DATE: 201709
